FAERS Safety Report 6251762-2 (Version None)
Quarter: 2009Q2

REPORT INFORMATION
  Report Type: 
  Country: None (occurrence: None)
  Receive Date: 20090630
  Receipt Date: 20090619
  Transmission Date: 20091009
  Serious: Yes (Hospitalization)
  Sender: FDA-Public Use
  Company Number: PHHO2009BR07881

PATIENT
  Sex: Female

DRUGS (6)
  1. CYCLOSPORINE [Suspect]
     Indication: RENAL TRANSPLANT
     Dosage: 100MG TWICE DAILY
     Route: 048
     Dates: start: 20030311, end: 20030512
  2. CYCLOSPORINE [Suspect]
     Dosage: 480NG/ML (UNKNOWN REGIMEN)
     Dates: start: 20030513, end: 20030516
  3. MYCOPHENOLATE MOFETIL [Suspect]
     Indication: RENAL TRANSPLANT
     Dosage: 1 GRAM TWICE DAILY
     Route: 048
     Dates: start: 20030311
  4. PREDNISONE TAB [Suspect]
     Indication: RENAL TRANSPLANT
     Dosage: 10MG DAILY
     Route: 048
     Dates: start: 20030313
  5. BACTRIM [Concomitant]
     Dosage: UNK
     Dates: start: 20030311, end: 20030916
  6. CIPROFLOXACIN [Concomitant]
     Dosage: UNK
     Dates: start: 20030324

REACTIONS (12)
  - ASTHENIA [None]
  - CONFUSIONAL STATE [None]
  - DEPRESSED LEVEL OF CONSCIOUSNESS [None]
  - HAEMOLYTIC ANAEMIA [None]
  - HEADACHE [None]
  - HYPERREFLEXIA [None]
  - ORTHOSTATIC HYPOTENSION [None]
  - PALLOR [None]
  - PSYCHOMOTOR HYPERACTIVITY [None]
  - RED BLOOD CELL SCHISTOCYTES PRESENT [None]
  - SPEECH DISORDER [None]
  - TREMOR [None]
